FAERS Safety Report 8265877-0 (Version None)
Quarter: 2012Q2

REPORT INFORMATION
  Report Type: 
  Country: None (occurrence: None)
  Receive Date: 20120406
  Receipt Date: 20120328
  Transmission Date: 20120825
  Serious: Yes (Hospitalization)
  Sender: FDA-Public Use
  Company Number: GB-GLAXOSMITHKLINE-B0782953A

PATIENT
  Sex: Male

DRUGS (5)
  1. DUTASTERIDE/TAMSULOSIN HYDROCHLORIDE [Suspect]
     Indication: BENIGN PROSTATIC HYPERPLASIA
     Dosage: 1CAP IN THE MORNING
     Route: 048
  2. LEVOTHYROXINE SODIUM [Concomitant]
     Dosage: 150MCG PER DAY
  3. EFFEXOR [Concomitant]
     Dosage: 75MG PER DAY
  4. DICLOFENAC SODIUM [Concomitant]
  5. BETAHISTINE [Concomitant]

REACTIONS (7)
  - SYNCOPE [None]
  - ROAD TRAFFIC ACCIDENT [None]
  - CONTUSION [None]
  - LOSS OF CONSCIOUSNESS [None]
  - EMOTIONAL DISTRESS [None]
  - DEJA VU [None]
  - VERTIGO [None]
